FAERS Safety Report 12991631 (Version 3)
Quarter: 2016Q4

REPORT INFORMATION
  Report Type: Report from Study
  Country: US (occurrence: CA)
  Receive Date: 20161201
  Receipt Date: 20161226
  Transmission Date: 20170207
  Serious: Yes (Other)
  Sender: FDA-Public Use
  Company Number: PHHY2014CA079878

PATIENT
  Age: 10 Year
  Sex: Male

DRUGS (4)
  1. ILARIS [Suspect]
     Active Substance: CANAKINUMAB
     Dosage: UNK
     Route: 065
     Dates: start: 2016
  2. METHOTREXATE. [Suspect]
     Active Substance: METHOTREXATE
     Indication: CROHN^S DISEASE
     Dosage: 15 MG, UNK
     Route: 058
  3. ILARIS [Suspect]
     Active Substance: CANAKINUMAB
     Indication: JUVENILE IDIOPATHIC ARTHRITIS
     Dosage: 150 MG,EVERY 3 WEEKS
     Route: 058
     Dates: start: 20140128
  4. ILARIS [Suspect]
     Active Substance: CANAKINUMAB
     Dosage: 150 MG 4 WEEKS
     Route: 058
     Dates: start: 201611

REACTIONS (8)
  - Diarrhoea [Unknown]
  - Juvenile idiopathic arthritis [Unknown]
  - Drug administration error [Unknown]
  - Tremor [Unknown]
  - Insomnia [Unknown]
  - Vomiting [Unknown]
  - Crohn^s disease [Unknown]
  - Chills [Unknown]

NARRATIVE: CASE EVENT DATE: 20161206
